FAERS Safety Report 9541323 (Version 1)
Quarter: 2013Q3

REPORT INFORMATION
  Report Type: Spontaneous
  Country: US (occurrence: US)
  Receive Date: 20130923
  Receipt Date: 20130923
  Transmission Date: 20140515
  Serious: No
  Sender: FDA-Public Use
  Company Number: US-009507513-1309USA003142

PATIENT
  Sex: Female
  Weight: 90.7 kg

DRUGS (9)
  1. CLARITIN [Suspect]
     Indication: ALLERGIC SINUSITIS
     Route: 048
  2. PROZAC [Concomitant]
     Indication: MENTAL DISORDER
  3. MIRTAZAPINE [Concomitant]
     Indication: MENTAL DISORDER
     Dosage: 30 MG DAILY AT NIGHT
     Route: 048
  4. CLONAZEPAM [Concomitant]
     Indication: MENTAL DISORDER
     Dosage: 1 MG, BID
  5. PRINIVIL [Concomitant]
     Indication: BLOOD PRESSURE ABNORMAL
     Route: 048
  6. LEVOTHYROXINE SODIUM [Concomitant]
     Indication: THYROID DISORDER
  7. OMEPRAZOLE [Concomitant]
     Indication: GASTROOESOPHAGEAL REFLUX DISEASE
  8. VITAMINS (UNSPECIFIED) [Concomitant]
  9. PROBIOTICA [Concomitant]

REACTIONS (4)
  - Depressed mood [Unknown]
  - Somnolence [Unknown]
  - Malaise [Unknown]
  - Affect lability [Unknown]
